FAERS Safety Report 26084312 (Version 1)
Quarter: 2025Q4

REPORT INFORMATION
  Report Type: Report from Study
  Country: US (occurrence: US)
  Receive Date: 20251124
  Receipt Date: 20251124
  Transmission Date: 20260117
  Serious: Yes (Other)
  Sender: REGENERON
  Company Number: US-REGENERON PHARMACEUTICALS, INC.-2025-144138

PATIENT
  Sex: Male

DRUGS (1)
  1. CEMIPLIMAB [Suspect]
     Active Substance: CEMIPLIMAB
     Indication: Basal cell carcinoma
     Dosage: 350 MG,Q3WKS
     Route: 042
     Dates: start: 202408, end: 20251008

REACTIONS (6)
  - Dermatosis [Unknown]
  - Fatigue [Unknown]
  - Skin irritation [Unknown]
  - Skin infection [Unknown]
  - Diarrhoea [Unknown]
  - Visual impairment [Unknown]

NARRATIVE: CASE EVENT DATE: 20240801
